FAERS Safety Report 10065661 (Version 3)
Quarter: 2014Q2

REPORT INFORMATION
  Report Type: Spontaneous
  Country: US (occurrence: US)
  Receive Date: 20140408
  Receipt Date: 20140526
  Transmission Date: 20141212
  Serious: No
  Sender: FDA-Public Use
  Company Number: US-PFIZER INC-2014094638

PATIENT
  Age: 76 Year
  Sex: Female
  Weight: 86.17 kg

DRUGS (2)
  1. TIKOSYN [Suspect]
     Indication: ATRIAL FIBRILLATION
     Dosage: 250 UG, 2X/DAY
  2. TIKOSYN [Suspect]
     Indication: ATRIAL FLUTTER

REACTIONS (5)
  - Asthma [Unknown]
  - Increased appetite [Unknown]
  - Abdominal pain upper [Unknown]
  - Micturition disorder [Unknown]
  - Drug effect incomplete [Unknown]
